FAERS Safety Report 6713356-1 (Version None)
Quarter: 2010Q2

REPORT INFORMATION
  Report Type: 
  Country: None (occurrence: None)
  Receive Date: 20100506
  Receipt Date: 20100415
  Transmission Date: 20101027
  Serious: Yes (Life-Threatening, Hospitalization)
  Sender: FDA-Public Use
  Company Number: US-BRACCO-003773

PATIENT
  Sex: Male
  Weight: 95 kg

DRUGS (11)
  1. VITAMIN B12 NOS [Concomitant]
  2. MULTIHANCE [Suspect]
     Indication: NUCLEAR MAGNETIC RESONANCE IMAGING
     Route: 042
     Dates: start: 20091124, end: 20091124
  3. MULTIHANCE [Suspect]
     Indication: COMPUTERISED TOMOGRAM ABNORMAL
     Route: 042
     Dates: start: 20091124, end: 20091124
  4. PULMICORT [Concomitant]
  5. FOLIC ACID [Concomitant]
  6. INDERAL [Concomitant]
  7. TRIAMTERENE AND HYDROCHLOROTHIAZIDE [Concomitant]
     Dosage: 37.5/25 MG DAILY
  8. ISOVUE-128 [Concomitant]
     Indication: COMPUTERISED TOMOGRAM
     Route: 065
     Dates: start: 20091120, end: 20091120
  9. ASPIRIN [Concomitant]
  10. METROGEL [Concomitant]
  11. NASONEX [Concomitant]

REACTIONS (3)
  - APNOEA [None]
  - ELECTROMECHANICAL DISSOCIATION [None]
  - LOSS OF CONSCIOUSNESS [None]
